FAERS Safety Report 6390853-2 (Version None)
Quarter: 2009Q4

REPORT INFORMATION
  Report Type: 
  Country: None (occurrence: None)
  Receive Date: 20091003
  Receipt Date: 20090916
  Transmission Date: 20100525
  Serious: Yes (Life-Threatening, Hospitalization)
  Sender: FDA-Public Use
  Company Number: DSA_41713_2009

PATIENT
  Sex: Male

DRUGS (11)
  1. DILTIAZEM HYDROCHLORIDE [Suspect]
     Indication: ARRHYTHMIA
     Dosage: FREQUENCY, UNKNOWN, ORAL
     Route: 048
     Dates: start: 20090604
  2. SECTRAL [Suspect]
     Indication: DRUG USE FOR UNKNOWN INDICATION
     Dosage: 400 MG, QD, ORAL
     Route: 048
     Dates: start: 20090518, end: 20090603
  3. RAMIPRIL [Suspect]
  4. IRBESARTAN [Suspect]
  5. FUROSEMIDE [Suspect]
  6. ATORVASTATIN CALCIUM [Suspect]
  7. LANTUS [Concomitant]
  8. PREVISCAN [Concomitant]
  9. MEDIATOR [Concomitant]
  10. LYRICA [Concomitant]
  11. GABAPENTIN [Concomitant]

REACTIONS (5)
  - ATRIOVENTRICULAR BLOCK COMPLETE [None]
  - BLOOD CREATININE INCREASED [None]
  - BLOOD POTASSIUM INCREASED [None]
  - CARDIOGENIC SHOCK [None]
  - MALAISE [None]
